FAERS Safety Report 7783485-2 (Version None)
Quarter: 2011Q3

REPORT INFORMATION
  Report Type: 
  Country: None (occurrence: None)
  Receive Date: 20110928
  Receipt Date: 20110915
  Transmission Date: 20111222
  Serious: Yes (Hospitalization, Disabling, Other)
  Sender: FDA-Public Use
  Company Number: BR-US-EMD SERONO, INC.-7079353

PATIENT
  Sex: Male

DRUGS (19)
  1. CYMBALTA [Concomitant]
  2. EUTONIS [Concomitant]
  3. OSCAL [Concomitant]
  4. REBIF [Suspect]
     Indication: MULTIPLE SCLEROSIS
     Dates: start: 20101227
  5. DICETAL [Concomitant]
  6. ENDOFOLIN [Concomitant]
  7. CLONAZEPAM [Concomitant]
     Dosage: ONE-HALF TABLET DAILY
  8. BONIVA [Concomitant]
  9. CEWIN [Concomitant]
  10. LOPID [Concomitant]
  11. PROPRANOLOL [Concomitant]
  12. DIASEC [Concomitant]
  13. IMOVANE [Concomitant]
  14. TYLENOL DC [Concomitant]
  15. ALLOPURINOL [Concomitant]
  16. DONARE RETARD [Concomitant]
  17. PHENERGAN [Concomitant]
  18. NARATRIPTAN [Concomitant]
  19. PANTOPRAZOLE [Concomitant]

REACTIONS (6)
  - PAIN [None]
  - DEAFNESS BILATERAL [None]
  - URINARY TRACT INFECTION [None]
  - COGNITIVE DISORDER [None]
  - BONE LOSS [None]
  - MULTIPLE SCLEROSIS RELAPSE [None]
